FAERS Safety Report 22159334 (Version 2)
Quarter: 2023Q2

REPORT INFORMATION
  Report Type: Other
  Country: US (occurrence: None)
  Receive Date: 20230331
  Receipt Date: 20230403
  Transmission Date: 20230721
  Serious: Yes (Death)
  Sender: FDA-Public Use
  Company Number: US-ROCHE-3320440

PATIENT
  Age: 35 Year
  Sex: Male

DRUGS (1)
  1. HERCEPTIN [Suspect]
     Active Substance: TRASTUZUMAB
     Indication: Meningioma malignant
     Dosage: INFUSE 150MG INTRAVENOUSLY EVERY WEEK
     Route: 042

REACTIONS (2)
  - Death [Fatal]
  - Off label use [Unknown]
